FAERS Safety Report 5717482-5 (Version None)
Quarter: 2008Q2

REPORT INFORMATION
  Report Type: 
  Country: None (occurrence: None)
  Receive Date: 20080425
  Receipt Date: 20080409
  Transmission Date: 20081010
  Serious: Yes (Life-Threatening, Hospitalization, Other)
  Sender: FDA-Public Use
  Company Number: KR-BAYER-200815950GPV

PATIENT
  Age: 65 Year
  Sex: Female
  Weight: 49 kg

DRUGS (4)
  1. FLUDARA [Suspect]
     Indication: ACUTE MYELOID LEUKAEMIA
     Route: 041
     Dates: start: 20080318, end: 20080321
  2. CYTARABINE [Suspect]
     Indication: ACUTE MYELOID LEUKAEMIA
     Route: 042
     Dates: start: 20080318, end: 20080321
  3. IDARUBICIN HCL [Suspect]
     Indication: ACUTE MYELOID LEUKAEMIA
     Route: 042
     Dates: start: 20080318, end: 20080320
  4. LASIX [Concomitant]
     Indication: ACUTE MYELOID LEUKAEMIA
     Route: 042
     Dates: start: 20080326

REACTIONS (5)
  - HAEMATOCHEZIA [None]
  - PANCYTOPENIA [None]
  - PNEUMONIA [None]
  - PULMONARY HAEMORRHAGE [None]
  - SEPTIC SHOCK [None]
